FAERS Safety Report 4516505-9 (Version None)
Quarter: 2004Q4

REPORT INFORMATION
  Report Type: 
  Country: None (occurrence: None)
  Receive Date: 20041012
  Receipt Date: 20040615
  Transmission Date: 20050328
  Serious: No
  Sender: FDA-Public Use
  Company Number: A03200401918

PATIENT
  Age: 95 Year
  Sex: Male

DRUGS (4)
  1. UROXATRAL [Suspect]
     Indication: POLLAKIURIA
     Dosage: 10 MG OD, ORAL
     Route: 048
     Dates: start: 20040613, end: 20040614
  2. RIVASTIGMINE TARTRATE [Concomitant]
  3. FUROSEMIDE [Concomitant]
  4. POTASSIUM [Concomitant]

REACTIONS (2)
  - HYPERHIDROSIS [None]
  - PAIN IN EXTREMITY [None]
